FAERS Safety Report 22238897 (Version 1)
Quarter: 2023Q2

REPORT INFORMATION
  Report Type: Spontaneous
  Country: TR (occurrence: None)
  Receive Date: 20230421
  Receipt Date: 20230421
  Transmission Date: 20230722
  Serious: Yes (Other)
  Sender: FDA-Public Use
  Company Number: 2023A090805

PATIENT
  Age: 25808 Day
  Sex: Female
  Weight: 80 kg

DRUGS (2)
  1. FASLODEX [Suspect]
     Active Substance: FULVESTRANT
     Dosage: 500.0MG UNKNOWN
     Route: 030
     Dates: start: 20230106
  2. ALPELISIB [Suspect]
     Active Substance: ALPELISIB
     Route: 048
     Dates: start: 20230106

REACTIONS (3)
  - Generalised tonic-clonic seizure [Recovering/Resolving]
  - Hallucination [Recovering/Resolving]
  - Syncope [Recovering/Resolving]

NARRATIVE: CASE EVENT DATE: 20230330
